FAERS Safety Report 5890948-3 (Version None)
Quarter: 2008Q3

REPORT INFORMATION
  Report Type: 
  Country: None (occurrence: None)
  Receive Date: 20080922
  Receipt Date: 20080912
  Transmission Date: 20090109
  Serious: Yes (Hospitalization)
  Sender: FDA-Public Use
  Company Number: A0744493A

PATIENT
  Age: 58 Year
  Sex: Female
  Weight: 112.7 kg

DRUGS (2)
  1. AVANDIA [Suspect]
     Indication: TYPE 2 DIABETES MELLITUS
     Dosage: 2MG SEE DOSAGE TEXT
     Route: 048
     Dates: start: 20050603
  2. AVANDAMET [Suspect]
     Indication: TYPE 2 DIABETES MELLITUS
     Route: 065
     Dates: end: 20060117

REACTIONS (18)
  - ARTERIOSCLEROSIS [None]
  - CARDIAC FAILURE CONGESTIVE [None]
  - CARDIAC HYPERTROPHY [None]
  - CARDIAC MYXOMA [None]
  - CORONARY ARTERY DISEASE [None]
  - CORONARY ARTERY STENOSIS [None]
  - GASTROINTESTINAL DISORDER [None]
  - HYPERTENSION [None]
  - HYPOXIA [None]
  - MYOCARDIAL INFARCTION [None]
  - PNEUMONIA [None]
  - POLYCYTHAEMIA [None]
  - PULMONARY HYPERTENSION [None]
  - RESPIRATORY FAILURE [None]
  - RESTRICTIVE PULMONARY DISEASE [None]
  - SUPRAVENTRICULAR TACHYCARDIA [None]
  - VASCULAR GRAFT [None]
  - VENTRICULAR EXTRASYSTOLES [None]
